FAERS Safety Report 7819020-X (Version None)
Quarter: 2011Q4

REPORT INFORMATION
  Report Type: 
  Country: None (occurrence: None)
  Receive Date: 20111012
  Receipt Date: 20110930
  Transmission Date: 20120403
  Serious: Yes (Hospitalization, Other)
  Sender: FDA-Public Use
  Company Number: AUR-APL-2010-00452

PATIENT
  Age: 69 Year
  Sex: Female

DRUGS (8)
  1. HYDROCHLOROTHIAZIDE [Suspect]
     Indication: HYPERTENSION
     Dosage: 12.5 MG, 1 IN 1 D, ORAL; 12.5 MG, 1 D
     Route: 048
     Dates: start: 20080101
  2. HYDROCHLOROTHIAZIDE [Suspect]
     Indication: HYPERTENSION
     Dosage: 12.5 MG, 1 IN 1 D, ORAL; 12.5 MG, 1 D
     Route: 048
     Dates: start: 20050101, end: 20080101
  3. BENICAR HCT [Suspect]
     Indication: HYPERTENSION
     Dosage: ORAL
     Route: 048
     Dates: start: 20020101, end: 20050101
  4. BENICAR [Suspect]
     Indication: HYPERTENSION
     Dosage: 40 MG, 1 D, ORAL; 20 MG, 1 D; 40 MG, 1 D, ORAL
     Route: 048
     Dates: start: 20080101, end: 20100101
  5. BENICAR [Suspect]
     Indication: HYPERTENSION
     Dosage: 40 MG, 1 D, ORAL; 20 MG, 1 D; 40 MG, 1 D, ORAL
     Route: 048
     Dates: start: 20050101, end: 20080101
  6. BENICAR [Suspect]
     Indication: HYPERTENSION
     Dosage: 40 MG, 1 D, ORAL; 20 MG, 1 D; 40 MG, 1 D, ORAL
     Route: 048
     Dates: start: 20100101
  7. INSULIN (INSULIN) [Concomitant]
  8. ECOTRUIN (ACETYLALICYLIC ACID) [Concomitant]

REACTIONS (9)
  - INCORRECT DOSE ADMINISTERED [None]
  - DYSPNOEA [None]
  - ABDOMINAL PAIN UPPER [None]
  - DIARRHOEA [None]
  - CAROTID ARTERY OCCLUSION [None]
  - HYPOTENSION [None]
  - CEREBROVASCULAR ACCIDENT [None]
  - HYPERTENSION [None]
  - HEART RATE DECREASED [None]
